FAERS Safety Report 25642878 (Version 1)
Quarter: 2025Q3

REPORT INFORMATION
  Report Type: Spontaneous
  Country: EU (occurrence: EU)
  Receive Date: 20250805
  Receipt Date: 20250805
  Transmission Date: 20251020
  Serious: Yes (Other)
  Sender: STRIDES
  Company Number: EU-STRIDES ARCOLAB LIMITED-2025SP009560

PATIENT
  Age: 80 Year
  Sex: Male

DRUGS (9)
  1. PREDNISOLONE [Suspect]
     Active Substance: PREDNISOLONE
     Indication: Cutaneous T-cell lymphoma stage III
     Route: 048
     Dates: start: 202105, end: 202106
  2. PREDNISOLONE [Suspect]
     Active Substance: PREDNISOLONE
     Indication: Dermatitis exfoliative generalised
     Route: 048
     Dates: start: 202205, end: 202207
  3. PREDNISOLONE [Suspect]
     Active Substance: PREDNISOLONE
     Indication: Skin exfoliation
  4. METHOTREXATE [Suspect]
     Active Substance: METHOTREXATE
     Indication: Dermatitis exfoliative generalised
     Route: 048
     Dates: start: 202210, end: 202304
  5. METHOTREXATE [Suspect]
     Active Substance: METHOTREXATE
     Indication: Skin exfoliation
  6. BEXAROTENE [Suspect]
     Active Substance: BEXAROTENE
     Indication: Cutaneous T-cell lymphoma stage III
     Route: 065
     Dates: start: 202105, end: 202108
  7. BEXAROTENE [Suspect]
     Active Substance: BEXAROTENE
     Indication: Dermatitis exfoliative generalised
  8. BEXAROTENE [Suspect]
     Active Substance: BEXAROTENE
     Indication: Skin exfoliation
  9. MOGAMULIZUMAB [Concomitant]
     Active Substance: MOGAMULIZUMAB
     Indication: Cutaneous T-cell lymphoma stage III
     Route: 042
     Dates: start: 202108, end: 202304

REACTIONS (3)
  - Disease progression [Unknown]
  - Drug ineffective for unapproved indication [Unknown]
  - Off label use [Unknown]

NARRATIVE: CASE EVENT DATE: 20210101
